FAERS Safety Report 9099421 (Version 2)
Quarter: 2013Q2

REPORT INFORMATION
  Report Type: Report from Study
  Country: DE (occurrence: DE)
  Receive Date: 20130213
  Receipt Date: 20130415
  Transmission Date: 20140414
  Serious: Yes (Other)
  Sender: FDA-Public Use
  Company Number: DE-ROCHE-1190823

PATIENT
  Sex: Female

DRUGS (5)
  1. RANIBIZUMAB [Suspect]
     Indication: AGE-RELATED MACULAR DEGENERATION
     Route: 050
     Dates: start: 20110811
  2. RANIBIZUMAB [Suspect]
     Route: 050
     Dates: start: 20120724
  3. RANIBIZUMAB [Suspect]
     Route: 050
     Dates: start: 20120904
  4. RANIBIZUMAB [Suspect]
     Route: 050
     Dates: start: 20121002
  5. HYPROMELLOSE EYE DROPS [Concomitant]
     Route: 065
     Dates: start: 20110911

REACTIONS (1)
  - Arrhythmia [Not Recovered/Not Resolved]
